FAERS Safety Report 4830065-4 (Version None)
Quarter: 2005Q4

REPORT INFORMATION
  Report Type: 
  Country: None (occurrence: None)
  Receive Date: 20051117
  Receipt Date: 20051107
  Transmission Date: 20060501
  Serious: Yes (Hospitalization)
  Sender: FDA-Public Use
  Company Number: US-JNJFOC-20050905629

PATIENT
  Sex: Female
  Weight: 48.99 kg

DRUGS (10)
  1. REMICADE [Suspect]
     Route: 042
  2. REMICADE [Suspect]
     Dosage: 100 CC
     Route: 042
  3. REMICADE [Suspect]
     Dosage: 50 CC
     Route: 042
  4. REMICADE [Suspect]
     Route: 042
  5. REMICADE [Suspect]
     Indication: CROHN'S DISEASE
     Route: 042
  6. BENADRYL [Concomitant]
  7. FLAGYL [Concomitant]
  8. AZASAN [Concomitant]
  9. IMURAN [Concomitant]
  10. TYLENOL (CAPLET) [Concomitant]

REACTIONS (5)
  - BODY TEMPERATURE INCREASED [None]
  - COLECTOMY [None]
  - INFUSION RELATED REACTION [None]
  - INFUSION SITE REACTION [None]
  - PRURITUS [None]
